FAERS Safety Report 24713734 (Version 1)
Quarter: 2024Q4

REPORT INFORMATION
  Report Type: Spontaneous
  Country: SE (occurrence: SE)
  Receive Date: 20241209
  Receipt Date: 20241209
  Transmission Date: 20250115
  Serious: Yes (Life-Threatening, Other)
  Sender: MERCK
  Company Number: None

PATIENT
  Age: 75 Year
  Sex: Female
  Weight: 62 kg

DRUGS (19)
  1. CUBICIN [Suspect]
     Active Substance: DAPTOMYCIN
     Indication: Hip surgery
     Dosage: 600 MILLIGRAM, QD
     Route: 042
     Dates: start: 20241021, end: 20241021
  2. CUBICIN [Suspect]
     Active Substance: DAPTOMYCIN
     Dosage: 500 MILLIGRAM, QD
     Route: 042
     Dates: start: 20241022, end: 20241023
  3. POLYETHYLENE GLYCOL 4000 [Concomitant]
     Active Substance: POLYETHYLENE GLYCOL 4000
     Dosage: 10 MILLIGRAM, 1 VB
     Route: 048
  4. ATORVASTATIN [Concomitant]
     Active Substance: ATORVASTATIN
     Dosage: 80 MILLIGRAM, QD, 2X1
     Route: 048
  5. OXYCODONE HYDROCHLORIDE [Concomitant]
     Active Substance: OXYCODONE HYDROCHLORIDE
     Dosage: 1-2 VB
     Route: 048
  6. MACROVIC [Concomitant]
     Dosage: 1 DOSAGE FORM, 1 VB
     Route: 048
  7. METOPROLOL SUCCINATE [Concomitant]
     Active Substance: METOPROLOL SUCCINATE
     Dosage: 50 MILLIGRAM, QD, 1X1
     Route: 048
  8. TRESIBA [Concomitant]
     Active Substance: INSULIN DEGLUDEC
     Dosage: 20 INTERNATIONAL UNIT, Q8H, 20E X3
     Route: 058
  9. ENALAPRIL/HYDROCHLOROTHIAZIDE MEDICAL VALLEY [Concomitant]
     Dosage: 1 DOSAGE FORM, QD, 1X1
     Route: 048
  10. NOVORAPID [Concomitant]
     Active Substance: INSULIN ASPART
     Dosage: 10 INTERNATIONAL UNIT, Q8H, 10 E X3
     Route: 058
  11. AMLODIPINE KRKA [Concomitant]
     Dosage: 10 MILLIGRAM, QD, 1X1
     Route: 048
  12. LEVOTHYROXINE SODIUM [Concomitant]
     Active Substance: LEVOTHYROXINE SODIUM
     Dosage: 50 MICROGRAM, QD, 1X1
     Route: 048
  13. SODIUM PICOSULFATE [Concomitant]
     Active Substance: SODIUM PICOSULFATE
     Dosage: 10-15 DROPS ETC
     Route: 045
  14. INNOHEP [Concomitant]
     Active Substance: TINZAPARIN SODIUM
     Dosage: 1 DOSAGE FORM, QD, 1X1
     Route: 058
  15. CYANOCOBALAMIN [Concomitant]
     Active Substance: CYANOCOBALAMIN
     Dosage: 1 MILLIGRAM, QD, 1X1
     Route: 048
  16. ACETAMINOPHEN [Concomitant]
     Active Substance: ACETAMINOPHEN
     Dosage: 1000 MILLIGRAM, Q6H, 2X4
     Route: 048
  17. ERGOCALCIFEROL [Concomitant]
     Active Substance: ERGOCALCIFEROL
     Dosage: 1 DOSAGE FORM, QD, 1X1
     Route: 048
  18. ONDANSETRON FRESENIUS KABI [Concomitant]
     Dosage: 1X1
     Route: 058
  19. FOLIC ACID VITABALANS [Concomitant]
     Dosage: 1 MILLIGRAM, QD
     Route: 048

REACTIONS (9)
  - Fatigue [Unknown]
  - Muscular weakness [Unknown]
  - Dyspnoea [Unknown]
  - Pain [Unknown]
  - Renal failure [Unknown]
  - Sepsis [Unknown]
  - Hallucination [Unknown]
  - Liver disorder [Recovering/Resolving]
  - Blood glucose increased [Unknown]

NARRATIVE: CASE EVENT DATE: 20241001
